FAERS Safety Report 13302885 (Version 4)
Quarter: 2018Q2

REPORT INFORMATION
  Report Type: Spontaneous
  Country: US (occurrence: US)
  Receive Date: 20170307
  Receipt Date: 20180529
  Transmission Date: 20180711
  Serious: Yes (Hospitalization, Other)
  Sender: FDA-Public Use
  Company Number: US-BAUSCH-BL-2017-004660

PATIENT
  Sex: Female

DRUGS (1)
  1. XIFAXAN [Suspect]
     Active Substance: RIFAXIMIN
     Indication: HEPATIC ENCEPHALOPATHY
     Route: 048
     Dates: start: 201303

REACTIONS (14)
  - Abdominal pain upper [Unknown]
  - Hallucination [Unknown]
  - Memory impairment [Unknown]
  - Insurance issue [Unknown]
  - Hepatic encephalopathy [Unknown]
  - Mood altered [Unknown]
  - Inability to afford medication [Unknown]
  - Anger [Unknown]
  - Sleep disorder [Unknown]
  - Borderline personality disorder [Unknown]
  - Anxiety [Unknown]
  - Gait disturbance [Unknown]
  - Depression [Unknown]
  - Stress [Unknown]
